FAERS Safety Report 8942018 (Version 1)
Quarter: 2012Q4

REPORT INFORMATION
  Report Type: 
  Country: US (occurrence: US)
  Receive Date: 20121203
  Receipt Date: 20121203
  Transmission Date: 20130627
  Serious: No
  Sender: FDA-Public Use
  Company Number: US-ASTRAZENECA-2012SE89476

PATIENT
  Age: 67 Year
  Sex: Female
  Weight: 88 kg

DRUGS (5)
  1. NEXIUM [Suspect]
     Indication: GASTROOESOPHAGEAL REFLUX DISEASE
     Route: 048
     Dates: start: 1992
  2. ZETIA [Concomitant]
     Indication: BLOOD CHOLESTEROL ABNORMAL
  3. ATORVASTATIN [Concomitant]
     Indication: BLOOD CHOLESTEROL ABNORMAL
  4. SPIRIVA [Concomitant]
     Indication: CHRONIC OBSTRUCTIVE PULMONARY DISEASE
  5. BYSTOLIC [Concomitant]
     Indication: HYPERTENSION

REACTIONS (10)
  - Chills [Unknown]
  - Influenza [Unknown]
  - Gastric infection [Unknown]
  - Migraine [Unknown]
  - Cough [Unknown]
  - Blood cholesterol increased [Unknown]
  - Hypertension [Unknown]
  - Chronic obstructive pulmonary disease [Unknown]
  - Nausea [Unknown]
  - Hyperhidrosis [Unknown]
